FAERS Safety Report 15402551 (Version 1)
Quarter: 2018Q3

REPORT INFORMATION
  Report Type: Report from Study
  Country: BR (occurrence: BR)
  Receive Date: 20180919
  Receipt Date: 20180919
  Transmission Date: 20181010
  Serious: Yes (Hospitalization)
  Sender: FDA-Public Use
  Company Number: PHHY2018BR009291

PATIENT
  Age: 76 Year
  Sex: Female

DRUGS (1)
  1. EXELON PATCH [Suspect]
     Active Substance: RIVASTIGMINE
     Indication: DEMENTIA ALZHEIMER^S TYPE
     Dosage: UNK, QD
     Route: 062
     Dates: start: 201707

REACTIONS (2)
  - Cerebrovascular accident [Recovering/Resolving]
  - Lack of application site rotation [Not Recovered/Not Resolved]

NARRATIVE: CASE EVENT DATE: 201801
